FAERS Safety Report 5805100-7 (Version None)
Quarter: 2008Q3

REPORT INFORMATION
  Report Type: 
  Country: None (occurrence: None)
  Receive Date: 20080707
  Receipt Date: 20080624
  Transmission Date: 20090109
  Serious: Yes (Death)
  Sender: FDA-Public Use
  Company Number: 2008AL003022

PATIENT
  Age: 39 Year
  Sex: Male

DRUGS (5)
  1. DIGOXIN [Suspect]
     Indication: CARDIAC FAILURE CONGESTIVE
     Dates: start: 20010101, end: 20050130
  2. DIOVAN HCT [Concomitant]
  3. METOPROLOL TARTRATE [Concomitant]
  4. LOVASTATIN [Concomitant]
  5. SPIRONOLACTONE [Concomitant]

REACTIONS (1)
  - MYOCARDIAL INFARCTION [None]
